FAERS Safety Report 22974210 (Version 3)
Quarter: 2023Q4

REPORT INFORMATION
  Report Type: Report from Study
  Country: US (occurrence: US)
  Receive Date: 20230923
  Receipt Date: 20231017
  Transmission Date: 20240110
  Serious: No
  Sender: FDA-Public Use
  Company Number: US-002147023-NVSC2023US206046

PATIENT
  Sex: Female

DRUGS (1)
  1. ENTRESTO [Suspect]
     Active Substance: SACUBITRIL\VALSARTAN
     Indication: Product used for unknown indication
     Dosage: 0.5 DOSAGE FORM, BID
     Route: 065
     Dates: start: 20230920

REACTIONS (2)
  - Heart rate increased [Unknown]
  - Wrong technique in product usage process [Unknown]
